FAERS Safety Report 6249865-1 (Version None)
Quarter: 2009Q2

REPORT INFORMATION
  Report Type: 
  Country: None (occurrence: None)
  Receive Date: 20090629
  Receipt Date: 20090618
  Transmission Date: 20091009
  Serious: Yes (Hospitalization)
  Sender: FDA-Public Use
  Company Number: CH-PFIZER INC-2009228645

PATIENT
  Age: 67 Year

DRUGS (6)
  1. NEURONTIN [Suspect]
     Indication: BACK PAIN
     Dosage: 300 MG, 3X/WEEK
     Route: 048
  2. REMERON [Suspect]
     Indication: DEPRESSION
     Dosage: 30 MG, 1X/DAY
     Route: 048
     Dates: start: 20090108, end: 20090407
  3. RIMIFON [Suspect]
     Indication: BONE TUBERCULOSIS
     Dosage: 900 MG, 3X/WEEK
     Route: 048
     Dates: start: 20090401, end: 20090416
  4. ETHAMBUTOL DIHYDROCHLORIDE [Suspect]
     Indication: BONE TUBERCULOSIS
     Dosage: 1200 MG, 3X/WEEK
     Route: 048
     Dates: start: 20090401
  5. RIMACTANE [Suspect]
     Indication: BONE TUBERCULOSIS
     Dosage: 600 MG, 3X/WEEK
     Route: 048
     Dates: start: 20090401
  6. PYRAZINAMIDE [Suspect]
     Indication: BONE TUBERCULOSIS
     Dosage: 1200 MG, 3X/WEEK
     Route: 048
     Dates: start: 20090401

REACTIONS (1)
  - DELIRIUM [None]
